FAERS Safety Report 9336566 (Version 1)
Quarter: 2013Q2

REPORT INFORMATION
  Report Type: Spontaneous
  Country: US (occurrence: US)
  Receive Date: 20130607
  Receipt Date: 20130607
  Transmission Date: 20140414
  Serious: No
  Sender: FDA-Public Use
  Company Number: US-PFIZER INC-2013171364

PATIENT
  Age: 59 Year
  Sex: Male
  Weight: 72.56 kg

DRUGS (3)
  1. VIAGRA [Suspect]
     Indication: ERECTILE DYSFUNCTION
     Dosage: 100 MG, AS NEEDED
     Route: 048
     Dates: start: 2012
  2. MOTRIN [Concomitant]
     Dosage: UNK
  3. RISPERDAL [Concomitant]
     Indication: BIPOLAR DISORDER
     Dosage: UNK

REACTIONS (1)
  - Nasal congestion [Unknown]
